FAERS Safety Report 10641175 (Version 1)
Quarter: 2014Q4

REPORT INFORMATION
  Report Type: Spontaneous
  Country: US (occurrence: None)
  Receive Date: 20141208
  Receipt Date: 20141208
  Transmission Date: 20150529
  Serious: Yes (Hospitalization, Other)
  Sender: FDA-Public Use
  Company Number: FK201405801

PATIENT
  Age: 17 Year
  Sex: Male

DRUGS (6)
  1. HYDROCORTISONE (HYDROCORTISONE) [Concomitant]
     Active Substance: HYDROCORTISONE
  2. CEFEPIME [Concomitant]
     Active Substance: CEFEPIME\CEFEPIME HYDROCHLORIDE
  3. LEVETIRACETAM (MANUFACTURER UNKNOWN) (LEVETIRACETAM) (LEVETIRACETAM) [Suspect]
     Active Substance: LEVETIRACETAM
     Indication: POSTERIOR REVERSIBLE ENCEPHALOPATHY SYNDROME
  4. FUROSEMIDE (MANUFACTURER UNKNOWN) (FUROSEMIDE) (FUROSEMIDE) [Suspect]
     Active Substance: FUROSEMIDE
     Indication: POSTERIOR REVERSIBLE ENCEPHALOPATHY SYNDROME
  5. AMLODIPINE [Suspect]
     Active Substance: AMLODIPINE BESYLATE
     Indication: POSTERIOR REVERSIBLE ENCEPHALOPATHY SYNDROME
  6. DAPSONE. [Suspect]
     Active Substance: DAPSONE
     Indication: PROPHYLAXIS

REACTIONS (2)
  - Drug reaction with eosinophilia and systemic symptoms [None]
  - Epstein-Barr virus infection [None]
